FAERS Safety Report 20526978 (Version 2)
Quarter: 2022Q1

REPORT INFORMATION
  Report Type: Report from Study
  Country: US (occurrence: US)
  Receive Date: 20220228
  Receipt Date: 20220315
  Transmission Date: 20220423
  Serious: Yes (Hospitalization)
  Sender: FDA-Public Use
  Company Number: US-ALKERMES INC.-ALK-2022-000964

PATIENT
  Age: 33 Year
  Sex: Male

DRUGS (19)
  1. VIVITROL [Suspect]
     Active Substance: NALTREXONE
     Indication: Drug use disorder
     Dosage: 380 MILLIGRAM, QMO
     Route: 030
     Dates: start: 20211227
  2. BUPRENORPHINE [Suspect]
     Active Substance: BUPRENORPHINE
     Indication: Drug use disorder
     Dosage: LOWDOSE
     Route: 048
     Dates: start: 20211217, end: 20211217
  3. NALTREXONE [Suspect]
     Active Substance: NALTREXONE
     Indication: Drug use disorder
     Dosage: 25 MILLIGRAM, ONE TIME DOSE
     Route: 048
     Dates: start: 20211227, end: 20211227
  4. CLONIDINE [Concomitant]
     Active Substance: CLONIDINE
     Indication: Prophylaxis
     Dosage: 0.1 MILLIGRAM, ONE TIME DOSE
     Route: 048
     Dates: start: 20211227, end: 20211227
  5. CLONIDINE [Concomitant]
     Active Substance: CLONIDINE
     Dosage: 0.2 MILLIGRAM, ONE TIME DOSE
     Route: 048
     Dates: start: 20211226, end: 20211226
  6. CLONIDINE [Concomitant]
     Active Substance: CLONIDINE
     Dosage: 0.2 MILLIGRAM, ONE TIME DOSE
     Route: 048
     Dates: start: 20211225, end: 20211225
  7. CLONIDINE [Concomitant]
     Active Substance: CLONIDINE
     Dosage: 0.2 MILLIGRAM, ONE TIME DOSE
     Route: 048
     Dates: start: 20211224, end: 20211224
  8. CLONIDINE [Concomitant]
     Active Substance: CLONIDINE
     Dosage: 0.3 MILLIGRAM, ONE TIME DOSE
     Route: 048
     Dates: start: 20211223, end: 20211223
  9. CLONIDINE [Concomitant]
     Active Substance: CLONIDINE
     Dosage: 0.2 MILLIGRAM, ONE TIME DOSE
     Route: 048
     Dates: start: 20211222, end: 20211222
  10. CLONIDINE [Concomitant]
     Active Substance: CLONIDINE
     Dosage: 0.1 MILLIGRAM, ONE TIME DOSE
     Route: 048
     Dates: start: 20211221, end: 20211221
  11. CLONIDINE [Concomitant]
     Active Substance: CLONIDINE
     Dosage: 0.1 MILLIGRAM, ONE TIME DOSE
     Route: 048
     Dates: start: 20211220, end: 20211220
  12. CLONIDINE [Concomitant]
     Active Substance: CLONIDINE
     Dosage: 0.1 MILLIGRAM, ONE TIME DOSE
     Route: 048
     Dates: start: 20211217, end: 20211217
  13. THERAFLU [CAMPHOR;EUCALYPTUS SPP. ESSENTIAL OIL;MYROXYLON BALSAMUM;ROS [Concomitant]
     Indication: Product used for unknown indication
     Dosage: UNK
     Route: 065
  14. MUCINEX [Concomitant]
     Active Substance: GUAIFENESIN
     Indication: Product used for unknown indication
     Dosage: UNK
     Route: 065
  15. VICKS DAYQUIL [Concomitant]
     Active Substance: DEXTROMETHORPHAN HYDROBROMIDE\GUAIFENESIN
     Indication: Product used for unknown indication
     Dosage: UNK
     Route: 065
  16. UNSPECIFIED INGREDIENT [Concomitant]
     Active Substance: UNSPECIFIED INGREDIENT
     Indication: Product used for unknown indication
     Dosage: UNK
     Route: 065
  17. CYCLOBENZAPRINE [Concomitant]
     Active Substance: CYCLOBENZAPRINE
     Indication: Product used for unknown indication
     Dosage: UNK
     Route: 065
  18. THERAVIT ANTIOXIDANT [Concomitant]
     Indication: Product used for unknown indication
     Dosage: UNK
     Route: 065
  19. BENTYL COMP [Concomitant]
     Indication: Product used for unknown indication
     Dosage: UNK
     Route: 065

REACTIONS (1)
  - Pneumonia [Recovered/Resolved]

NARRATIVE: CASE EVENT DATE: 20220220
